FAERS Safety Report 4692457-6 (Version None)
Quarter: 2005Q2

REPORT INFORMATION
  Report Type: 
  Country: None (occurrence: None)
  Receive Date: 20050613
  Receipt Date: 20050329
  Transmission Date: 20051028
  Serious: Yes (Hospitalization)
  Sender: FDA-Public Use
  Company Number: 2005-00679

PATIENT
  Age: 78 Year
  Sex: Male

DRUGS (2)
  1. VELCADE [Suspect]
     Indication: MULTIPLE MYELOMA
     Dosage: 11.60 MG, 2/WEEK, INTRAVENOUS
     Route: 042
     Dates: start: 20050208, end: 20050218
  2. DOXIL [Suspect]
     Indication: MULTIPLE MYELOMA
     Dosage: 66.00 MG, Q3WEEKS, INTRAVENOUS
     Route: 042
     Dates: start: 20050211, end: 20050218

REACTIONS (1)
  - PNEUMONIA [None]
